FAERS Safety Report 8190657-4 (Version None)
Quarter: 2012Q1

REPORT INFORMATION
  Report Type: 
  Country: None (occurrence: None)
  Receive Date: 20120307
  Receipt Date: 20120229
  Transmission Date: 20120608
  Serious: Yes (Death, Other)
  Sender: FDA-Public Use
  Company Number: CA-ROCHE-1005618

PATIENT
  Sex: Female
  Weight: 54.48 kg

DRUGS (4)
  1. AVASTIN [Suspect]
     Indication: GLIOBLASTOMA
     Route: 042
     Dates: start: 20110922, end: 20120112
  2. CLOBAZAM [Concomitant]
  3. PREDNISONE TAB [Concomitant]
     Indication: BRAIN OEDEMA
     Dates: start: 20111207
  4. DECADRON [Concomitant]

REACTIONS (5)
  - CONFUSIONAL STATE [None]
  - DEATH [None]
  - PLATELET COUNT DECREASED [None]
  - DYSGRAPHIA [None]
  - BRAIN OEDEMA [None]
